FAERS Safety Report 6568252-X (Version None)
Quarter: 2010Q1

REPORT INFORMATION
  Report Type: 
  Country: None (occurrence: None)
  Receive Date: 20100128
  Receipt Date: 20100113
  Transmission Date: 20100710
  Serious: Yes (Life-Threatening, Hospitalization)
  Sender: FDA-Public Use
  Company Number: 004741

PATIENT
  Sex: Female

DRUGS (4)
  1. OMEPRAZOLE [Suspect]
     Indication: GASTRITIS
     Dosage: (ORAL)
     Route: 048
     Dates: start: 20051227, end: 20060213
  2. SPIRIVA [Concomitant]
  3. RANITIDINE HYDROCHLORIDE [Concomitant]
  4. CALCICHEW-D3 [Concomitant]

REACTIONS (5)
  - ANTINEUTROPHIL CYTOPLASMIC ANTIBODY POSITIVE [None]
  - BLOOD PRESSURE SYSTOLIC INCREASED [None]
  - PARAPROTEINAEMIA [None]
  - RENAL FAILURE ACUTE [None]
  - TUBULOINTERSTITIAL NEPHRITIS [None]
